FAERS Safety Report 20339314 (Version 2)
Quarter: 2022Q1

REPORT INFORMATION
  Report Type: Spontaneous
  Country: US (occurrence: None)
  Receive Date: 20220117
  Receipt Date: 20220211
  Transmission Date: 20220423
  Serious: Yes (Hospitalization)
  Sender: FDA-Public Use
  Company Number: US-ROCHE-3002708

PATIENT
  Age: 61 Year
  Sex: Female

DRUGS (34)
  1. ACTEMRA [Suspect]
     Active Substance: TOCILIZUMAB
     Indication: Juvenile idiopathic arthritis
     Dosage: STRENGTH:162 MG/0.9 ML
     Route: 058
  2. ACTEMRA [Suspect]
     Active Substance: TOCILIZUMAB
  3. ACTEMRA [Suspect]
     Active Substance: TOCILIZUMAB
     Indication: Rheumatoid arthritis
     Route: 042
  4. ACTEMRA [Suspect]
     Active Substance: TOCILIZUMAB
     Dosage: YES
     Route: 042
  5. DEVICE [Concomitant]
     Active Substance: DEVICE
     Indication: Migraine
  6. DEVICE [Concomitant]
     Active Substance: DEVICE
     Indication: Pain
  7. ALBUTEROL [Concomitant]
     Active Substance: ALBUTEROL
  8. ASPIRIN [Concomitant]
     Active Substance: ASPIRIN
  9. LIPITOR [Concomitant]
     Active Substance: ATORVASTATIN CALCIUM
  10. BOTOX [Concomitant]
     Active Substance: ONABOTULINUMTOXINA
     Indication: Muscle twitching
  11. CALCIUM CITRATE [Concomitant]
     Active Substance: CALCIUM CITRATE
  12. CORTISONE [Concomitant]
     Active Substance: CORTISONE
     Indication: Pain
  13. CREON [Concomitant]
     Active Substance: PANCRELIPASE AMYLASE\PANCRELIPASE LIPASE\PANCRELIPASE PROTEASE
     Indication: Pancreatitis
  14. FIBER [Concomitant]
     Active Substance: PSYLLIUM HUSK
  15. FOLIC ACID [Concomitant]
     Active Substance: FOLIC ACID
  16. METHOTREXATE [Concomitant]
     Active Substance: METHOTREXATE
  17. CORTEF [Concomitant]
     Active Substance: HYDROCORTISONE
  18. HYDROXYZINE [Concomitant]
     Active Substance: HYDROXYZINE HYDROCHLORIDE
     Indication: Migraine
  19. SYNTHROID [Concomitant]
     Active Substance: LEVOTHYROXINE SODIUM
  20. MAGNESIUM OXIDE [Concomitant]
     Active Substance: MAGNESIUM OXIDE
  21. NAMENDA [Concomitant]
     Active Substance: MEMANTINE HYDROCHLORIDE
     Indication: Migraine
  22. NATPARA (PARATHYROID HORMONE) [Concomitant]
     Active Substance: PARATHYROID HORMONE
  23. ZOFRAN [Concomitant]
     Active Substance: ONDANSETRON HYDROCHLORIDE
     Indication: Nausea
  24. OXYGEN [Concomitant]
     Active Substance: OXYGEN
     Dosage: AT NIGHT
  25. PROTONIX [Concomitant]
     Active Substance: PANTOPRAZOLE SODIUM
     Indication: Gastrooesophageal reflux disease
  26. PROTONIX [Concomitant]
     Active Substance: PANTOPRAZOLE SODIUM
     Indication: Dyspepsia
  27. COMPAZINE [Concomitant]
     Active Substance: PROCHLORPERAZINE MALEATE
     Indication: Migraine
  28. PROPRANOLOL HYDROCHLORIDE [Concomitant]
     Active Substance: PROPRANOLOL HYDROCHLORIDE
  29. COLACE [Concomitant]
     Active Substance: DOCUSATE SODIUM
  30. TRAMADOL [Concomitant]
     Active Substance: TRAMADOL
     Indication: Pancreatitis
  31. VITAMIN B12 [Concomitant]
     Active Substance: CYANOCOBALAMIN
  32. EPIPEN [Concomitant]
     Active Substance: EPINEPHRINE
  33. ZEASORB AF (UNITED STATES) [Concomitant]
     Indication: Rash
  34. ZEASORB AF (UNITED STATES) [Concomitant]
     Indication: Fungal infection

REACTIONS (5)
  - COVID-19 [Recovered/Resolved]
  - Pneumonia [Unknown]
  - Transient ischaemic attack [Unknown]
  - Loss of consciousness [Unknown]
  - Blood cholesterol increased [Unknown]

NARRATIVE: CASE EVENT DATE: 20211205
